FAERS Safety Report 5889536-4 (Version None)
Quarter: 2008Q3

REPORT INFORMATION
  Report Type: 
  Country: None (occurrence: None)
  Receive Date: 20080919
  Receipt Date: 20080911
  Transmission Date: 20090109
  Serious: Yes (Hospitalization, Other)
  Sender: FDA-Public Use
  Company Number: US-ABBOTT-08P-163-0475820-00

PATIENT
  Age: 3 Year
  Sex: Female

DRUGS (4)
  1. VALPROIC ACID [Suspect]
     Indication: EPILEPSY
     Route: 065
  2. LAMOTRIGINE [Suspect]
     Indication: EPILEPSY
     Route: 065
  3. LAMOTRIGINE [Suspect]
     Dosage: UNKNOWN
     Route: 065
  4. PHENYTOIN [Suspect]
     Indication: EPILEPSY
     Route: 065

REACTIONS (5)
  - BONE MARROW TOXICITY [None]
  - HAEMOPHILUS INFECTION [None]
  - HEPATOTOXICITY [None]
  - LOBAR PNEUMONIA [None]
  - STATUS EPILEPTICUS [None]
